FAERS Safety Report 11744188 (Version 1)
Quarter: 2015Q4

REPORT INFORMATION
  Report Type: Spontaneous
  Country: US (occurrence: US)
  Receive Date: 20151116
  Receipt Date: 20151116
  Transmission Date: 20160304
  Serious: No
  Sender: FDA-Public Use
  Company Number: US-009507513-1511USA005543

PATIENT
  Sex: Female
  Weight: 90.7 kg

DRUGS (1)
  1. NUVARING [Suspect]
     Active Substance: ETHINYL ESTRADIOL\ETONOGESTREL
     Indication: CONTRACEPTION
     Dosage: 1 DF, QM RING / 3 WEEKS IN 1 WEEK OUT
     Route: 067
     Dates: start: 2011

REACTIONS (2)
  - Inappropriate schedule of drug administration [Unknown]
  - Vaginal haemorrhage [Not Recovered/Not Resolved]
